FAERS Safety Report 19498513 (Version 1)
Quarter: 2021Q3

REPORT INFORMATION
  Report Type: Report from Study
  Country: US (occurrence: US)
  Receive Date: 20210706
  Receipt Date: 20210706
  Transmission Date: 20211014
  Serious: Yes (Hospitalization)
  Sender: FDA-Public Use
  Company Number: US-EXELIXIS-XL18421041995

PATIENT

DRUGS (18)
  1. MARINOL [Concomitant]
     Active Substance: DRONABINOL
  2. COMPAZINE [Concomitant]
     Active Substance: PROCHLORPERAZINE MALEATE
  3. VITAMIN D3 [Concomitant]
     Active Substance: CHOLECALCIFEROL
  4. MS CONTIN [Concomitant]
     Active Substance: MORPHINE SULFATE
  5. ZYRTEC [Concomitant]
     Active Substance: CETIRIZINE HYDROCHLORIDE
  6. RITALIN [Concomitant]
     Active Substance: METHYLPHENIDATE HYDROCHLORIDE
  7. NASONEX [Concomitant]
     Active Substance: MOMETASONE FUROATE
  8. SINGULAIR [Concomitant]
     Active Substance: MONTELUKAST SODIUM
  9. ROXICODONE [Concomitant]
     Active Substance: OXYCODONE HYDROCHLORIDE
  10. XL184 [Suspect]
     Active Substance: CABOZANTINIB
     Indication: SARCOMA
     Dosage: 20 MG, QOD
     Route: 048
     Dates: start: 20210209, end: 20210529
  11. NIVOLUMAB [Suspect]
     Active Substance: NIVOLUMAB
     Indication: SARCOMA
     Dosage: 3 MG/KG, Q 3?4 WEEKS
     Route: 042
     Dates: start: 20210209, end: 20210601
  12. VOLTAREN [Concomitant]
     Active Substance: DICLOFENAC SODIUM
  13. CYMBALTA [Concomitant]
     Active Substance: DULOXETINE HYDROCHLORIDE
  14. IPILIMUMAB [Suspect]
     Active Substance: IPILIMUMAB
     Indication: SARCOMA
     Dosage: 1 MG/KG, Q 3?4 WEEKS
     Route: 042
     Dates: start: 20210209, end: 20210601
  15. SYNTHROID [Concomitant]
     Active Substance: LEVOTHYROXINE SODIUM
  16. ZOFRAN [Concomitant]
     Active Substance: ONDANSETRON HYDROCHLORIDE
  17. LYRICA [Concomitant]
     Active Substance: PREGABALIN
  18. CLARITIN [Concomitant]
     Active Substance: LORATADINE

REACTIONS (2)
  - Cellulitis [Unknown]
  - Sepsis [Unknown]

NARRATIVE: CASE EVENT DATE: 20210626
